FAERS Safety Report 7321499-7 (Version None)
Quarter: 2011Q1

REPORT INFORMATION
  Report Type: 
  Country: None (occurrence: None)
  Receive Date: 20110228
  Receipt Date: 20110218
  Transmission Date: 20110831
  Serious: Yes (Other)
  Sender: FDA-Public Use
  Company Number: US-ASTRAZENECA-2011SE06007

PATIENT
  Age: 57 Year
  Sex: Female

DRUGS (3)
  1. ATACAND [Concomitant]
  2. NEXIUM [Suspect]
     Route: 048
  3. ISOSORBIDE DINITRATE [Concomitant]

REACTIONS (3)
  - GASTROOESOPHAGEAL REFLUX DISEASE [None]
  - DRUG DOSE OMISSION [None]
  - MYOCARDIAL INFARCTION [None]
